FAERS Safety Report 7391972-4 (Version None)
Quarter: 2011Q2

REPORT INFORMATION
  Report Type: 
  Country: None (occurrence: None)
  Receive Date: 20110404
  Receipt Date: 20110321
  Transmission Date: 20111010
  Serious: Yes (Disabling)
  Sender: FDA-Public Use
  Company Number: GB-WATSON-2011-04315

PATIENT
  Age: 46 Year
  Sex: Female
  Weight: 83 kg

DRUGS (27)
  1. SODIUM CHLORIDE [Suspect]
     Dosage: 250 ML, UNK
     Route: 042
     Dates: start: 20101215, end: 20101215
  2. DEXAMETHASONE [Suspect]
     Indication: PRODUCT USED FOR UNKNOWN INDICATION
     Dosage: 8 MG, UNK
     Route: 042
     Dates: start: 20101208
  3. SODIUM CHLORIDE [Suspect]
     Dosage: 100 ML, UNK
     Route: 042
     Dates: start: 20101208, end: 20101208
  4. SODIUM CHLORIDE [Suspect]
     Dosage: 100 ML, UNK
     Route: 042
  5. PACLITAXEL [Suspect]
     Dosage: 157 MG, UNK
     Route: 042
     Dates: start: 20110215, end: 20110215
  6. PACLITAXEL [Suspect]
     Dosage: 157 MG, UNK
     Route: 042
     Dates: start: 20101208, end: 20101208
  7. SODIUM CHLORIDE [Suspect]
     Dosage: 250 ML, UNK
     Route: 042
     Dates: start: 20101208, end: 20101208
  8. PACLITAXEL [Suspect]
     Dosage: 157 MG, UNK
     Route: 042
     Dates: start: 20110119, end: 20110119
  9. PACLITAXEL [Suspect]
     Dosage: 157 MG, UNK
     Route: 042
     Dates: start: 20110105, end: 20110105
  10. SODIUM CHLORIDE [Suspect]
     Dosage: 250 ML, UNK
     Route: 042
     Dates: start: 20110105, end: 20110105
  11. RANITIDINE HYDROCHLORIDE [Suspect]
     Indication: PRODUCT USED FOR UNKNOWN INDICATION
     Dosage: 50 MG, UNK
     Route: 042
     Dates: start: 20101208
  12. PACLITAXEL [Suspect]
     Dosage: 157 MG, UNK
     Route: 042
     Dates: start: 20101229, end: 20101229
  13. PACLITAXEL [Suspect]
     Dosage: 157 MG, UNK
     Route: 042
     Dates: start: 20101222, end: 20101222
  14. SODIUM CHLORIDE [Suspect]
     Dosage: 250 ML, UNK
     Route: 042
     Dates: start: 20110120, end: 20110120
  15. SODIUM CHLORIDE [Suspect]
     Dosage: 250 ML, UNK
     Route: 042
     Dates: start: 20101229, end: 20101229
  16. SODIUM CHLORIDE [Suspect]
     Dosage: 250 ML, UNK
     Route: 042
     Dates: start: 20101222, end: 20101222
  17. PACLITAXEL [Suspect]
     Dosage: 157 MG, UNK
     Route: 042
     Dates: start: 20110112, end: 20110112
  18. SODIUM CHLORIDE [Suspect]
     Dosage: 250 ML, UNK
     Route: 042
     Dates: start: 20110119, end: 20110119
  19. ALOXI [Suspect]
     Indication: PRODUCT USED FOR UNKNOWN INDICATION
     Dosage: 250 MG, UNK
     Route: 042
     Dates: start: 20101208
  20. PACLITAXEL [Suspect]
     Dosage: 157 MG, UNK
     Route: 042
     Dates: start: 20110202, end: 20110202
  21. SODIUM CHLORIDE [Suspect]
     Indication: BREAST CANCER
     Dosage: 250 ML, UNK
     Route: 042
     Dates: start: 20110215, end: 20110215
  22. CHLORPHENAMINE [Suspect]
     Indication: PRODUCT USED FOR UNKNOWN INDICATION
     Dosage: 10 MG, UNK
     Route: 042
     Dates: start: 20101208
  23. PACLITAXEL [Suspect]
     Indication: BREAST CANCER
     Dosage: 100 MG, UNK
     Route: 042
     Dates: start: 20110223, end: 20110223
  24. PACLITAXEL [Suspect]
     Dosage: 157 MG, UNK
     Route: 042
     Dates: start: 20110120, end: 20110120
  25. PACLITAXEL [Suspect]
     Dosage: 157 MG, UNK
     Route: 042
     Dates: start: 20101215, end: 20101215
  26. SODIUM CHLORIDE [Suspect]
     Dosage: 250 ML, UNK
     Route: 042
     Dates: start: 20110202, end: 20110202
  27. SODIUM CHLORIDE [Suspect]
     Dosage: 250 ML, UNK
     Route: 042
     Dates: start: 20110223, end: 20110223

REACTIONS (1)
  - NEUROPATHY PERIPHERAL [None]
